FAERS Safety Report 9341472 (Version 1)
Quarter: 2013Q2

REPORT INFORMATION
  Report Type: Report from Study
  Country: CA (occurrence: CA)
  Receive Date: 20130611
  Receipt Date: 20130611
  Transmission Date: 20140414
  Serious: Yes (Hospitalization, Other)
  Sender: FDA-Public Use
  Company Number: CA-JNJFOC-20130600308

PATIENT
  Age: 37 Year
  Sex: Female
  Weight: 69.85 kg

DRUGS (7)
  1. REMICADE [Suspect]
     Indication: CROHN^S DISEASE
     Dosage: ALSO REPORTED AS PATIENT THOUGHT DOSE WAS 4 VIALS; STOPPED ON DEC-2011 OR JAN-2012
     Route: 042
  2. REMICADE [Suspect]
     Indication: CROHN^S DISEASE
     Dosage: SEP OR OCT-2012 AT WHICH TIME PATIENT RECEIVED INFLIXIMAB INFUSION
     Route: 042
     Dates: start: 2012
  3. METHOTREXATE [Concomitant]
     Indication: FIBROMYALGIA
     Dosage: 6 TABLETS
     Route: 065
     Dates: start: 201209
  4. METHOTREXATE [Concomitant]
     Indication: CROHN^S DISEASE
     Dosage: 6 TABLETS
     Route: 065
     Dates: start: 201209
  5. IRON [Concomitant]
     Route: 065
  6. PREDNISONE [Concomitant]
     Route: 065
  7. MULTIVITAMINS [Concomitant]
     Route: 065

REACTIONS (4)
  - Fibromyalgia [Unknown]
  - Pain [Unknown]
  - Weight decreased [Unknown]
  - Haemorrhage [Unknown]
